FAERS Safety Report 6165180-9 (Version None)
Quarter: 2009Q2

REPORT INFORMATION
  Report Type: 
  Country: None (occurrence: None)
  Receive Date: 20090423
  Receipt Date: 20090416
  Transmission Date: 20091009
  Serious: Yes (Other)
  Sender: FDA-Public Use
  Company Number: GB-TEVA-192057ISR

PATIENT
  Age: 68 Year
  Sex: Female
  Weight: 90 kg

DRUGS (1)
  1. SIMVASTATIN [Suspect]
     Route: 048
     Dates: start: 20060301, end: 20080829

REACTIONS (2)
  - COUGH [None]
  - TACHYCARDIA [None]
